FAERS Safety Report 18082365 (Version 1)
Quarter: 2020Q3

REPORT INFORMATION
  Report Type: Spontaneous
  Country: US (occurrence: US)
  Receive Date: 20200729
  Receipt Date: 20200729
  Transmission Date: 20201103
  Serious: No
  Sender: FDA-Public Use
  Company Number: US-SA-2020SA194155

PATIENT

DRUGS (1)
  1. PLAVIX [Suspect]
     Active Substance: CLOPIDOGREL BISULFATE
     Dosage: UNK EVERY DAY
     Route: 065

REACTIONS (4)
  - Mouth haemorrhage [Unknown]
  - Tooth erosion [Unknown]
  - Visual impairment [Unknown]
  - Teeth brittle [Unknown]
